FAERS Safety Report 6604137-8 (Version None)
Quarter: 2010Q1

REPORT INFORMATION
  Report Type: 
  Country: None (occurrence: None)
  Receive Date: 20100226
  Receipt Date: 20090708
  Transmission Date: 20100710
  Serious: No
  Sender: FDA-Public Use
  Company Number: A0789107A

PATIENT
  Age: 27 Year
  Sex: Female
  Weight: 50 kg

DRUGS (2)
  1. LAMICTAL CD [Suspect]
     Indication: BIPOLAR DISORDER
     Route: 048
  2. UNSPECIFIED MEDICATION [Concomitant]

REACTIONS (3)
  - ORAL DISORDER [None]
  - OROPHARYNGEAL BLISTERING [None]
  - RASH [None]
